FAERS Safety Report 6216492-1 (Version None)
Quarter: 2009Q2

REPORT INFORMATION
  Report Type: 
  Country: None (occurrence: None)
  Receive Date: 20090605
  Receipt Date: 20090528
  Transmission Date: 20091009
  Serious: Yes (Other)
  Sender: FDA-Public Use
  Company Number: US-MERCK-0906USA00594

PATIENT
  Age: 7 Year

DRUGS (3)
  1. DECADRON [Suspect]
     Indication: LYMPHOHISTIOCYTOSIS
     Route: 048
  2. CYCLOSPORINE [Concomitant]
     Route: 065
  3. ETOPOSIDE [Concomitant]
     Route: 065

REACTIONS (3)
  - HEPATIC FUNCTION ABNORMAL [None]
  - HYPERTENSION [None]
  - NEUROTOXICITY [None]
